FAERS Safety Report 10566047 (Version 1)
Quarter: 2014Q4

REPORT INFORMATION
  Report Type: Spontaneous
  Country: US (occurrence: None)
  Receive Date: 20141104
  Receipt Date: 20141104
  Transmission Date: 20150529
  Serious: No
  Sender: FDA-Public Use
  Company Number: None

PATIENT
  Age: 8 Year
  Sex: Female
  Weight: 22.68 kg

DRUGS (2)
  1. MONTELUKAST [Suspect]
     Active Substance: MONTELUKAST SODIUM
     Indication: MULTIPLE ALLERGIES
     Dosage: 1 PILL; ORAL CHEWABLE
     Route: 048
     Dates: start: 20140616, end: 20141102
  2. MONTELUKAST [Suspect]
     Active Substance: MONTELUKAST SODIUM
     Dosage: 1 PILL; ORAL CHEWABLE
     Route: 048
     Dates: start: 20140616, end: 20141102

REACTIONS (2)
  - Urine odour abnormal [None]
  - Skin odour abnormal [None]

NARRATIVE: CASE EVENT DATE: 20140825
